FAERS Safety Report 9928842 (Version 1)
Quarter: 2014Q1

REPORT INFORMATION
  Report Type: Spontaneous
  Country: US (occurrence: US)
  Receive Date: 20140227
  Receipt Date: 20140227
  Transmission Date: 20141002
  Serious: Yes (Death, Life-Threatening, Hospitalization, Other)
  Sender: FDA-Public Use
  Company Number: US-MERCK-1402USA011304

PATIENT
  Sex: Male
  Weight: 113.38 kg

DRUGS (10)
  1. JANUVIA [Suspect]
     Indication: TYPE 2 DIABETES MELLITUS
     Dosage: 100 MG, QD
     Route: 048
     Dates: start: 20100517, end: 20101218
  2. JANUVIA [Suspect]
     Dosage: 100 MG, QD
     Route: 048
     Dates: start: 20110213, end: 20110315
  3. BYETTA [Suspect]
     Indication: TYPE 2 DIABETES MELLITUS
  4. METFORMIN [Concomitant]
     Indication: TYPE 2 DIABETES MELLITUS
  5. TOPROL XL TABLETS [Concomitant]
     Indication: VENTRICULAR TACHYCARDIA
     Dosage: 100 MG, BID
  6. DIOVAN [Concomitant]
     Indication: HYPERTENSION
     Dosage: 320 MG, QD
  7. WELLBUTRIN [Concomitant]
     Indication: DEPRESSION
     Dosage: 150 MG, QD
  8. CLOTRIMAZOLE [Concomitant]
     Indication: SKIN CANDIDA
  9. GLUCOPHAGE [Concomitant]
     Indication: TYPE 2 DIABETES MELLITUS
     Dosage: 1000 MG, BID
  10. GLUCOTROL [Concomitant]
     Indication: TYPE 2 DIABETES MELLITUS

REACTIONS (15)
  - Adenocarcinoma pancreas [Fatal]
  - Diagnostic aspiration [Unknown]
  - Diagnostic aspiration [Unknown]
  - Hypokalaemia [Unknown]
  - Gastrointestinal haemorrhage [Unknown]
  - Malignant ascites [Unknown]
  - Haemolytic anaemia [Unknown]
  - Dyspnoea [Unknown]
  - Dizziness [Unknown]
  - Haemorrhage [Unknown]
  - Muscle spasms [Unknown]
  - Helicobacter infection [Unknown]
  - Chest pain [Unknown]
  - Visual acuity reduced [Unknown]
  - Back pain [Unknown]
